FAERS Safety Report 16302466 (Version 1)
Quarter: 2019Q2

REPORT INFORMATION
  Report Type: Spontaneous
  Country: US (occurrence: US)
  Receive Date: 20190513
  Receipt Date: 20190513
  Transmission Date: 20190711
  Serious: No
  Sender: FDA-Public Use
  Company Number: US-B.I. PHARMACEUTICALS,INC./RIDGEFIELD-2019-BI-020520

PATIENT
  Sex: Female

DRUGS (10)
  1. PRADAXA [Suspect]
     Active Substance: DABIGATRAN ETEXILATE MESYLATE
     Indication: ATRIAL FIBRILLATION
     Dosage: ADMINISTRATION CORRECT? YES ?ACTION(S) TAKEN WITH PRODUCT: DOSE NOT CHANGED
     Route: 048
     Dates: start: 2015
  2. ATORVASTATIN [Concomitant]
     Active Substance: ATORVASTATIN
     Indication: MYOCARDIAL INFARCTION
     Dosage: ;  FORM STRENGTH: 10MG; FORMULATION: TABLET
     Route: 048
  3. ADVAIR HFA [Concomitant]
     Active Substance: FLUTICASONE PROPIONATE\SALMETEROL XINAFOATE
     Indication: MULTIPLE ALLERGIES
     Route: 065
  4. COLOSTRUM PLUS [Concomitant]
     Indication: GASTROINTESTINAL DISORDER
     Route: 065
  5. COLOSTRUM PLUS [Concomitant]
     Indication: IMMUNE SYSTEM DISORDER
  6. COREG [Concomitant]
     Active Substance: CARVEDILOL
     Indication: PRODUCT USED FOR UNKNOWN INDICATION
     Dosage: ;  FORM STRENGTH: 3.125MG; FORMULATION: TABLET
     Route: 048
  7. IRON [Concomitant]
     Active Substance: IRON
     Indication: FATIGUE
     Dosage: 1 TABLET TWICE DAILY;  FORM STRENGTH: 27MG; FORMULATION: TABLET
     Route: 048
  8. TYLENOL [Concomitant]
     Active Substance: ACETAMINOPHEN
     Indication: PRODUCT USED FOR UNKNOWN INDICATION
     Route: 065
  9. ALBUTEROL SULFATE HFA [Concomitant]
     Active Substance: ALBUTEROL SULFATE
     Indication: MULTIPLE ALLERGIES
     Route: 065
  10. MONTELUKAST [Concomitant]
     Active Substance: MONTELUKAST SODIUM
     Indication: MULTIPLE ALLERGIES
     Route: 065

REACTIONS (7)
  - Dehydration [Unknown]
  - Gastrooesophageal reflux disease [Recovered/Resolved]
  - Headache [Recovered/Resolved]
  - Multiple allergies [Unknown]
  - Cough [Recovered/Resolved]
  - Abdominal discomfort [Not Recovered/Not Resolved]
  - Pollakiuria [Not Recovered/Not Resolved]

NARRATIVE: CASE EVENT DATE: 2018
